FAERS Safety Report 8960297 (Version 1)
Quarter: 2012Q4

REPORT INFORMATION
  Report Type: 
  Country: US (occurrence: US)
  Receive Date: 20121212
  Receipt Date: 20121212
  Transmission Date: 20130627
  Serious: Yes (Hospitalization)
  Sender: FDA-Public Use
  Company Number: US-ELI_LILLY_AND_COMPANY-US201212000166

PATIENT
  Sex: Male

DRUGS (2)
  1. AXIRON [Suspect]
     Indication: BLOOD TESTOSTERONE DECREASED
     Dosage: 30 mg, under each arm daily
  2. AXIRON [Suspect]
     Dosage: 30 mg, under one arm daily

REACTIONS (3)
  - Obstructive airways disorder [Unknown]
  - Dyspnoea [Recovered/Resolved]
  - Dyspnoea [Unknown]
